FAERS Safety Report 14648901 (Version 1)
Quarter: 2018Q1

REPORT INFORMATION
  Report Type: Spontaneous
  Country: US (occurrence: US)
  Receive Date: 20180316
  Receipt Date: 20180316
  Transmission Date: 20180509
  Serious: No
  Sender: FDA-Public Use
  Company Number: US-WEST-WARD PHARMACEUTICALS CORP.-US-H14001-17-03649

PATIENT
  Sex: Female
  Weight: 59.42 kg

DRUGS (2)
  1. MEGESTROL ACETATE. [Suspect]
     Active Substance: MEGESTROL ACETATE
     Indication: WEIGHT DECREASED
     Route: 048
     Dates: start: 20170919
  2. MEGESTROL ACETATE. [Suspect]
     Active Substance: MEGESTROL ACETATE
     Indication: DECREASED APPETITE

REACTIONS (2)
  - Amenorrhoea [Unknown]
  - Drug ineffective [Unknown]
